FAERS Safety Report 4410446-3 (Version None)
Quarter: 2004Q3

REPORT INFORMATION
  Report Type: 
  Country: None (occurrence: None)
  Receive Date: 20040728
  Receipt Date: 20040722
  Transmission Date: 20050211
  Serious: Yes (Other)
  Sender: FDA-Public Use
  Company Number: FR-MERCK-0407FRA00068

PATIENT
  Age: 55 Year
  Sex: Female

DRUGS (3)
  1. FOSAMAX [Suspect]
     Indication: OSTEOPOROSIS
     Route: 048
     Dates: start: 20040501, end: 20040719
  2. BETA ALANINE [Concomitant]
     Indication: POSTMENOPAUSE
     Route: 048
  3. CALCIUM CITRATE AND CHOLECALCIFEROL [Concomitant]
     Indication: OSTEOPOROSIS
     Route: 048

REACTIONS (2)
  - APHONIA [None]
  - COUGH [None]
